FAERS Safety Report 18154640 (Version 1)
Quarter: 2020Q3

REPORT INFORMATION
  Report Type: Spontaneous
  Country: TR (occurrence: TR)
  Receive Date: 20200817
  Receipt Date: 20200817
  Transmission Date: 20201103
  Serious: Yes (Hospitalization)
  Sender: FDA-Public Use
  Company Number: TR-TEVA-2020-TR-1815015

PATIENT
  Age: 6 Year
  Sex: Male

DRUGS (4)
  1. VALPROATE [Concomitant]
     Active Substance: VALPROIC ACID
     Indication: RHEUMATIC FEVER
     Dosage: 500 MILLIGRAM DAILY;
     Route: 065
  2. BENZILPENICILLIN [Concomitant]
     Indication: RHEUMATIC FEVER
     Route: 065
  3. HALOPERIDOL. [Concomitant]
     Active Substance: HALOPERIDOL
     Indication: RHEUMATIC FEVER
     Dosage: 1.5 MILLIGRAM DAILY;
     Route: 065
  4. METHYLPHENIDATE. [Suspect]
     Active Substance: METHYLPHENIDATE
     Indication: ATTENTION DEFICIT HYPERACTIVITY DISORDER
     Dosage: 18 MILLIGRAM DAILY; OSMOTIC RELEASE ORAL SYSTEM METHYLPHENIDATE WAS USED
     Route: 048

REACTIONS (1)
  - Chorea [Recovered/Resolved]
